FAERS Safety Report 9348397 (Version 1)
Quarter: 2013Q2

REPORT INFORMATION
  Report Type: Spontaneous
  Country: US (occurrence: US)
  Receive Date: 20130614
  Receipt Date: 20130614
  Transmission Date: 20140414
  Serious: Yes (Other)
  Sender: FDA-Public Use
  Company Number: US-BRISTOL-MYERS SQUIBB COMPANY-18977785

PATIENT
  Age: 54 Year
  Sex: Female
  Weight: 103.85 kg

DRUGS (5)
  1. ABILIFY [Suspect]
     Indication: BIPOLAR DISORDER
     Dates: start: 2006
  2. ABILIFY [Suspect]
     Indication: DEPRESSION
     Dates: start: 2006
  3. WELLBUTRIN [Concomitant]
  4. TEGRETOL [Concomitant]
  5. LAMICTAL [Concomitant]

REACTIONS (3)
  - Ovarian mass [Unknown]
  - Feeling hot [Unknown]
  - Night sweats [Unknown]
